FAERS Safety Report 8696955 (Version 2)
Quarter: 2013Q4

REPORT INFORMATION
  Report Type: Spontaneous
  Country: CH (occurrence: CH)
  Receive Date: 20120801
  Receipt Date: 20131031
  Transmission Date: 20140711
  Serious: Yes (Hospitalization, Other)
  Sender: FDA-Public Use
  Company Number: CH-009507513-1207CHE010524

PATIENT
  Age: 82 Year
  Sex: Male

DRUGS (15)
  1. INEGY [Suspect]
     Indication: LIPID METABOLISM DISORDER
     Dosage: 1 DF, QD
     Route: 048
     Dates: end: 201204
  2. SINTROM MITIS [Suspect]
     Dosage: UNK, PRN
     Route: 048
     Dates: end: 20120429
  3. VOLTAREN [Suspect]
     Dosage: 50 MG, TID
     Route: 048
     Dates: end: 201205
  4. ASPIRIN CARDIO [Suspect]
     Dosage: 100 MG, QD
  5. MEPHANOL [Suspect]
     Indication: GOUT
     Dosage: 300 MG, QD
     Route: 048
     Dates: end: 201205
  6. NEBILET [Suspect]
     Indication: ESSENTIAL HYPERTENSION
     Dosage: 1.25 MG, QD
     Route: 048
  7. FLUDEX [Suspect]
     Indication: ESSENTIAL HYPERTENSION
     Dosage: 1.5 MG, QD
     Route: 048
  8. APROVEL [Concomitant]
     Dosage: 150 MG, QD
     Route: 048
  9. CARDIPLANT [Concomitant]
     Dosage: 80 MG, BID
     Route: 048
  10. SPIRIVA [Concomitant]
     Dosage: 18 MICROGRAM, QD
     Route: 055
  11. TRANSIPEG [Concomitant]
     Dosage: 1 DF, QD
     Route: 048
  12. PRIORIN N [Concomitant]
     Dosage: 1 DF, BID
     Route: 048
  13. FLUIMUCIL [Concomitant]
     Dosage: 600 MG, QD
     Route: 048
  14. KCI PHARMA MEGAVIT [Concomitant]
     Dosage: 10 MMOL, BID
     Route: 048
  15. AVODART [Concomitant]
     Dosage: 0.5 MG, QD
     Route: 048

REACTIONS (7)
  - Renal failure acute [Recovered/Resolved]
  - Gastrointestinal haemorrhage [Recovered/Resolved]
  - Dizziness [Recovered/Resolved]
  - Haematochezia [Recovered/Resolved]
  - Haemorrhagic anaemia [Recovered/Resolved]
  - Myocardial infarction [Recovered/Resolved]
  - Gastric ulcer [Unknown]
